FAERS Safety Report 10776722 (Version 1)
Quarter: 2015Q1

REPORT INFORMATION
  Report Type: Spontaneous
  Country: US (occurrence: US)
  Receive Date: 20150209
  Receipt Date: 20150209
  Transmission Date: 20150721
  Serious: No
  Sender: FDA-Public Use
  Company Number: US-GLAXOSMITHKLINE-A1091068A

PATIENT

DRUGS (7)
  1. BENLYSTA [Suspect]
     Active Substance: BELIMUMAB
     Indication: SYSTEMIC LUPUS ERYTHEMATOSUS
     Dosage: UNKNOWN DOSING. EVERY 28 DAYS.
     Route: 042
     Dates: start: 201210, end: 20140908
  2. ABILIFY [Concomitant]
     Active Substance: ARIPIPRAZOLE
  3. VIMPAT [Concomitant]
     Active Substance: LACOSAMIDE
  4. EFFEXOR [Concomitant]
     Active Substance: VENLAFAXINE HYDROCHLORIDE
  5. ATIVAN [Concomitant]
     Active Substance: LORAZEPAM
  6. CELLCEPT [Concomitant]
     Active Substance: MYCOPHENOLATE MOFETIL\MYCOPHENOLATE MOFETIL HYDROCHLORIDE
  7. REMERON [Concomitant]
     Active Substance: MIRTAZAPINE

REACTIONS (1)
  - Depression [Not Recovered/Not Resolved]
